FAERS Safety Report 7244258-2 (Version None)
Quarter: 2011Q1

REPORT INFORMATION
  Report Type: 
  Country: None (occurrence: None)
  Receive Date: 20110125
  Receipt Date: 20110114
  Transmission Date: 20110831
  Serious: Yes (Hospitalization)
  Sender: FDA-Public Use
  Company Number: PT-JNJFOC-20110105847

PATIENT
  Sex: Male
  Weight: 64 kg

DRUGS (10)
  1. DUTASTERIDE [Concomitant]
  2. CYANOCOBALAMIN [Concomitant]
  3. LOPRAZOLAM [Concomitant]
  4. OMEPRAZOLE [Concomitant]
  5. WARFARIN SODIUM [Concomitant]
     Indication: EMBOLISM ARTERIAL
  6. FUROSEMIDE [Concomitant]
  7. DIGOXIN [Concomitant]
     Indication: CARDIAC FAILURE
  8. ZALDIAR [Suspect]
     Indication: BACK PAIN
     Route: 048
  9. ALLOPURINOL [Concomitant]
     Indication: GOUT
  10. FOLIC ACID [Concomitant]

REACTIONS (3)
  - BRADYCARDIA [None]
  - PERIPHERAL COLDNESS [None]
  - COLD SWEAT [None]
